FAERS Safety Report 16461259 (Version 1)
Quarter: 2019Q2

REPORT INFORMATION
  Report Type: Spontaneous
  Country: US (occurrence: US)
  Receive Date: 20190621
  Receipt Date: 20190621
  Transmission Date: 20190711
  Serious: Yes (Other)
  Sender: FDA-Public Use
  Company Number: US-SUNOVION-2019SUN002549

PATIENT
  Sex: Male

DRUGS (1)
  1. LATUDA [Suspect]
     Active Substance: LURASIDONE HYDROCHLORIDE
     Dosage: 40 MG, QD
     Route: 048

REACTIONS (8)
  - Cast application [Unknown]
  - Herpes zoster [Unknown]
  - Paranasal sinus neoplasm [Unknown]
  - Retinal disorder [Unknown]
  - Meningitis [Unknown]
  - Nasal disorder [Unknown]
  - Knee operation [Unknown]
  - Finger amputation [Unknown]
